FAERS Safety Report 14023062 (Version 1)
Quarter: 2017Q3

REPORT INFORMATION
  Report Type: Spontaneous
  Country: FR (occurrence: FR)
  Receive Date: 20170929
  Receipt Date: 20170929
  Transmission Date: 20171128
  Serious: Yes (Hospitalization, Other)
  Sender: FDA-Public Use
  Company Number: FR-PFIZER INC-2017418290

PATIENT
  Age: 86 Year
  Sex: Male

DRUGS (18)
  1. ATROVENT [Concomitant]
     Active Substance: IPRATROPIUM BROMIDE
  2. COLCHICINE. [Concomitant]
     Active Substance: COLCHICINE
  3. PANTOPRAZOLE [Concomitant]
     Active Substance: PANTOPRAZOLE
     Dosage: UNK
     Dates: end: 20170710
  4. LYRICA [Suspect]
     Active Substance: PREGABALIN
     Indication: PAIN
     Dosage: UNK
     Route: 048
     Dates: end: 20170720
  5. IMOVANE [Concomitant]
     Active Substance: ZOPICLONE
  6. BRICANYL [Concomitant]
     Active Substance: TERBUTALINE SULFATE
  7. CARBAMAZEPINE. [Concomitant]
     Active Substance: CARBAMAZEPINE
  8. TRIATEC [Concomitant]
     Active Substance: RAMIPRIL
  9. DUROGESIC [Suspect]
     Active Substance: FENTANYL
     Indication: ARTHRALGIA
     Dosage: 1 DF (12 UG/H (2.1 MG/5.25 CM2)), 1X/DAY
     Route: 062
     Dates: end: 20170720
  10. ACTISKENAN [Suspect]
     Active Substance: MORPHINE SULFATE
     Indication: ARTHRALGIA
     Dosage: 10 MG, 1X/DAY
     Route: 048
     Dates: start: 20170708, end: 20170720
  11. XATRAL [Concomitant]
     Active Substance: ALFUZOSIN
  12. GARDENAL [Concomitant]
     Active Substance: PHENOBARBITAL
  13. FRAGMINE [Concomitant]
     Active Substance: DALTEPARIN SODIUM
  14. DIFFU K [Concomitant]
     Active Substance: POTASSIUM CHLORIDE
  15. PARACETAMOL [Concomitant]
     Active Substance: ACETAMINOPHEN
  16. LASILIX [Concomitant]
     Active Substance: FUROSEMIDE
     Dosage: UNK
     Dates: start: 201707, end: 20170708
  17. UVEDOSE [Concomitant]
     Active Substance: CHOLECALCIFEROL
  18. LASILIX [Concomitant]
     Active Substance: FUROSEMIDE
     Dosage: UNK

REACTIONS (5)
  - Constipation [Recovered/Resolved]
  - Hyponatraemia [Recovered/Resolved]
  - Anal fistula [Unknown]
  - Vomiting [Recovered/Resolved]
  - Blood uric acid increased [Unknown]

NARRATIVE: CASE EVENT DATE: 20170708
